FAERS Safety Report 6553014-X (Version None)
Quarter: 2010Q1

REPORT INFORMATION
  Report Type: 
  Country: None (occurrence: None)
  Receive Date: 20100122
  Receipt Date: 20100112
  Transmission Date: 20100710
  Serious: Yes (Other)
  Sender: FDA-Public Use
  Company Number: 20100013

PATIENT
  Age: 17 Month
  Sex: Female

DRUGS (5)
  1. LIDOCAINE HYDROCHLORIDE INJ [Suspect]
     Indication: ENDOTRACHEAL INTUBATION
     Dosage: 13 MG (1.5MG/KG) INTRAVENOUS
     Route: 042
  2. ALBUTEROL [Concomitant]
  3. NITROUS OXIDE [Concomitant]
  4. SEVOFLURANE [Concomitant]
  5. MIDAZOLAM HCL [Concomitant]

REACTIONS (1)
  - BRONCHOSPASM [None]
